FAERS Safety Report 5197576-6 (Version None)
Quarter: 2006Q4

REPORT INFORMATION
  Report Type: 
  Country: None (occurrence: None)
  Receive Date: 20061228
  Receipt Date: 20061218
  Transmission Date: 20070319
  Serious: Yes (Other)
  Sender: FDA-Public Use
  Company Number: 2006SP005605

PATIENT
  Age: 59 Year
  Sex: Male
  Weight: 67 kg

DRUGS (10)
  1. PEG-INTRON [Suspect]
     Indication: HEPATITIS C
     Dosage: 100 MCG; QW; SC
     Route: 058
     Dates: start: 20060117, end: 20060704
  2. REBETOL [Suspect]
     Indication: HEPATITIS C
     Dosage: 600 MG; QD; PO; SEE IMAGE
     Route: 048
     Dates: start: 20060117, end: 20060117
  3. REBETOL [Suspect]
     Indication: HEPATITIS C
     Dosage: 600 MG; QD; PO; SEE IMAGE
     Route: 048
     Dates: start: 20060118, end: 20060704
  4. SUMIFERON (INTERFERON ALFA) [Suspect]
     Indication: HEPATITIS C
     Dosage: 6 MIU; TIW; SC
     Route: 058
     Dates: start: 20060808
  5. MYSLEE [Concomitant]
  6. DORAL [Concomitant]
  7. HARNAL [Concomitant]
  8. BEZATOL [Concomitant]
  9. DIGOSIN [Concomitant]
  10. WARFARIN SODIUM [Concomitant]

REACTIONS (7)
  - DEMENTIA ALZHEIMER'S TYPE [None]
  - FALL [None]
  - HEAD INJURY [None]
  - HEPATITIS C RNA POSITIVE [None]
  - RASH [None]
  - ROAD TRAFFIC ACCIDENT [None]
  - SPEECH DISORDER [None]
